FAERS Safety Report 19602840 (Version 2)
Quarter: 2021Q3

REPORT INFORMATION
  Report Type: Report from Study
  Country: DE (occurrence: TW)
  Receive Date: 20210723
  Receipt Date: 20210806
  Transmission Date: 20211014
  Serious: Yes (Other)
  Sender: FDA-Public Use
  Company Number: TW-ELI_LILLY_AND_COMPANY-TW202107009472

PATIENT
  Age: 74 Year
  Sex: Male

DRUGS (4)
  1. CETUXIMAB. [Suspect]
     Active Substance: CETUXIMAB
     Indication: COLON CANCER
     Dosage: 500 MG/M2, 2/M
     Route: 042
     Dates: start: 20210118
  2. FLUOROURACIL. [Concomitant]
     Active Substance: FLUOROURACIL
     Indication: COLON CANCER
     Dosage: UNK
     Dates: start: 20210118
  3. OXALIPLATIN. [Concomitant]
     Active Substance: OXALIPLATIN
     Indication: COLON CANCER
     Dosage: UNK
     Dates: start: 20210118
  4. FOLINIC ACID [Concomitant]
     Active Substance: LEUCOVORIN
     Indication: COLON CANCER
     Dosage: UNK
     Dates: start: 20210118

REACTIONS (2)
  - Neutropenia [Recovered/Resolved]
  - Off label use [Unknown]

NARRATIVE: CASE EVENT DATE: 20210712
